FAERS Safety Report 6415872-9 (Version None)
Quarter: 2009Q4

REPORT INFORMATION
  Report Type: 
  Country: None (occurrence: None)
  Receive Date: 20091022
  Receipt Date: 20091016
  Transmission Date: 20100525
  Serious: Yes (Life-Threatening, Hospitalization, Other)
  Sender: FDA-Public Use
  Company Number: 2009JP005580

PATIENT
  Age: 55 Year
  Sex: Male
  Weight: 61.5 kg

DRUGS (8)
  1. PROGRAF [Suspect]
     Indication: RENAL TRANSPLANT
     Dosage: 2 MG, BID, ORAL
     Route: 048
  2. PREDNISOLONE [Concomitant]
  3. ALSAZULENE (LEVOGLUTAMIDE, AZULENE SODIUM SULFONATE) GRANULE [Concomitant]
  4. ADALAT TABLET [Concomitant]
  5. CELLCEPT [Concomitant]
  6. DIOVAN [Concomitant]
  7. PERSANTIN (DIPYRIDAMOLE) CAPSULE [Concomitant]
  8. AMLODIN (AMLODIPINE BESILATE) TABLET [Concomitant]

REACTIONS (7)
  - ACUTE MYOCARDIAL INFARCTION [None]
  - CARDIAC PERFORATION [None]
  - CARDIAC TAMPONADE [None]
  - HAEMODIALYSIS [None]
  - IMPAIRED HEALING [None]
  - LEFT VENTRICULAR FAILURE [None]
  - PERICARDIAL EFFUSION [None]
